FAERS Safety Report 8581916-1 (Version None)
Quarter: 2012Q3

REPORT INFORMATION
  Report Type: 
  Country: None (occurrence: None)
  Receive Date: 20120809
  Receipt Date: 20120801
  Transmission Date: 20120928
  Serious: Yes (Other)
  Sender: FDA-Public Use
  Company Number: US-SHIRE-ALL1-2012-02637

PATIENT
  Sex: Male

DRUGS (2)
  1. VELAGLUCERASE ALFA [Suspect]
     Indication: GAUCHER'S DISEASE
     Dosage: 21 IU/KG, 1X/2WKS
     Route: 041
     Dates: start: 20110101
  2. ZAVESCA [Concomitant]
     Indication: GAUCHER'S DISEASE
     Dosage: 100 MG, UNKNOWN
     Route: 048

REACTIONS (1)
  - B-CELL LYMPHOMA [None]
